FAERS Safety Report 9028150 (Version 2)
Quarter: 2013Q2

REPORT INFORMATION
  Report Type: Spontaneous
  Country: MX (occurrence: MX)
  Receive Date: 20130123
  Receipt Date: 20130415
  Transmission Date: 20140414
  Serious: Yes (Other)
  Sender: FDA-Public Use
  Company Number: MX-RANBAXY-2013RR-64187

PATIENT
  Age: 30 Year
  Sex: Female

DRUGS (3)
  1. NAPROXEN [Suspect]
     Indication: MALAISE
     Dosage: UNK
     Route: 065
  2. AMPICILLIN [Concomitant]
     Indication: MALAISE
     Dosage: UNK
     Route: 065
  3. METOCLOPRAMIDE [Concomitant]
     Indication: MALAISE
     Dosage: UNK
     Route: 065

REACTIONS (1)
  - Pseudoporphyria [Recovering/Resolving]
